FAERS Safety Report 7018795-X (Version None)
Quarter: 2010Q3

REPORT INFORMATION
  Report Type: 
  Country: None (occurrence: None)
  Receive Date: 20100928
  Receipt Date: 20100921
  Transmission Date: 20110219
  Serious: Yes (Other)
  Sender: FDA-Public Use
  Company Number: US-PFIZER INC-2010120562

PATIENT
  Sex: Female
  Weight: 59 kg

DRUGS (3)
  1. OGEN [Suspect]
     Dosage: 0.625 MG, 1X/DAY
     Route: 048
  2. LIOTRIX [Suspect]
     Indication: HYPOTHYROIDISM
     Dosage: UNK
  3. ENJUVIA [Suspect]
     Dosage: 0.625 MG, DAILY
     Route: 048
     Dates: start: 20090101

REACTIONS (8)
  - ALOPECIA [None]
  - ASTHENIA [None]
  - HAIR TEXTURE ABNORMAL [None]
  - HERPES ZOSTER [None]
  - MALAISE [None]
  - PAIN [None]
  - RASH [None]
  - VISION BLURRED [None]
